FAERS Safety Report 16474834 (Version 1)
Quarter: 2019Q2

REPORT INFORMATION
  Report Type: Spontaneous
  Country: US (occurrence: US)
  Receive Date: 20190515
  Receipt Date: 20190515
  Transmission Date: 20190711
  Serious: No
  Sender: FDA-Public Use
  Company Number: None

PATIENT
  Age: 83 Year
  Sex: Male

DRUGS (1)
  1. RIVAROXABAN [Suspect]
     Active Substance: RIVAROXABAN
     Route: 048

REACTIONS (3)
  - Gastric haemorrhage [None]
  - Abdominal discomfort [None]
  - Abdominal pain [None]

NARRATIVE: CASE EVENT DATE: 20190221
